FAERS Safety Report 8190451-4 (Version None)
Quarter: 2012Q1

REPORT INFORMATION
  Report Type: 
  Country: None (occurrence: None)
  Receive Date: 20120307
  Receipt Date: 20120229
  Transmission Date: 20120608
  Serious: Yes (Death, Other)
  Sender: FDA-Public Use
  Company Number: US-BAYER-201015769NA

PATIENT
  Age: 82 Year
  Sex: Female
  Weight: 53.515 kg

DRUGS (25)
  1. BUPIVACAINE HCL [Concomitant]
     Dosage: UNK
     Route: 042
     Dates: start: 20061030, end: 20061030
  2. HEPARIN [Concomitant]
     Dosage: UNK
     Route: 042
     Dates: start: 20061030, end: 20061030
  3. ZOFRAN [Concomitant]
     Dosage: 4MG
     Route: 042
     Dates: start: 20061029
  4. NAPROXEN [Concomitant]
     Dosage: 250 MG, BID
     Route: 048
  5. RED BLOOD CELLS [Concomitant]
     Dosage: UNK
     Dates: start: 20061030
  6. TRASYLOL [Suspect]
     Indication: AORTIC SURGERY
  7. PROTAMINE SULFATE [Concomitant]
     Dosage: UNK
     Route: 042
     Dates: start: 20061030, end: 20061030
  8. MORPHINE [Concomitant]
     Dosage: UNK
     Route: 042
     Dates: start: 20061030, end: 20061030
  9. FRESH FROZEN PLASMA [Concomitant]
     Dosage: UNK
     Route: 042
     Dates: start: 20061030
  10. AMIODARONE HCL [Concomitant]
  11. NITROGLYCERIN [Concomitant]
     Dosage: UNK
     Route: 042
     Dates: start: 20061030, end: 20061030
  12. ANCEF [Concomitant]
     Dosage: UNK
     Route: 042
     Dates: start: 20061030, end: 20061030
  13. EXCEDRIN [ACETYLSALICYLIC ACID,CAFFEINE,PARACETAMOL] [Concomitant]
     Dosage: PRN
  14. LABETALOL HCL [Concomitant]
     Dosage: 20MG
     Route: 042
     Dates: start: 20061030, end: 20061030
  15. AMITRIPTYLINE HCL [Concomitant]
     Dosage: 10 MG, UNK
     Route: 048
  16. ATENOLOL [Concomitant]
     Dosage: 25 MG, ONCE
     Route: 048
  17. FOSAMAX [Concomitant]
     Dosage: 70 MG, OW
     Route: 048
  18. AMICAR [Concomitant]
     Dosage: UNK
     Dates: start: 20061030
  19. VANCOMYCIN [Concomitant]
     Dosage: UNK
     Route: 042
     Dates: start: 20061030, end: 20061030
  20. OXYCODONE HCL [Concomitant]
  21. PLATELETS [Concomitant]
     Dosage: UNK
     Route: 042
     Dates: start: 20061030
  22. TRASYLOL [Suspect]
     Indication: AORTIC VALVE REPLACEMENT
     Dosage: 600 ML, ONCE, TOTAL
     Route: 042
     Dates: start: 20061030
  23. COZAAR [Concomitant]
     Dosage: 50 MG, ONCE
     Route: 048
  24. DDAVP [Concomitant]
     Dosage: UNK
     Dates: start: 20061030
  25. NIPRIDE [Concomitant]

REACTIONS (15)
  - DEATH [None]
  - RENAL FAILURE [None]
  - RENAL IMPAIRMENT [None]
  - RESPIRATORY FAILURE [None]
  - EMOTIONAL DISTRESS [None]
  - FEAR [None]
  - ANXIETY [None]
  - ANHEDONIA [None]
  - MULTI-ORGAN FAILURE [None]
  - GASTROINTESTINAL HAEMORRHAGE [None]
  - PAIN [None]
  - RENAL INJURY [None]
  - STRESS [None]
  - UNEVALUABLE EVENT [None]
  - INJURY [None]
